FAERS Safety Report 4898825-1 (Version None)
Quarter: 2006Q1

REPORT INFORMATION
  Report Type: 
  Country: None (occurrence: None)
  Receive Date: 20060202
  Receipt Date: 20060127
  Transmission Date: 20060701
  Serious: Yes (Hospitalization)
  Sender: FDA-Public Use
  Company Number: US-GLAXOSMITHKLINE-A0591778A

PATIENT
  Age: 34 Year
  Sex: Female

DRUGS (11)
  1. FLOLAN [Suspect]
     Dates: start: 20011126
  2. BLINDED TRIAL MEDICATION [Suspect]
     Indication: PULMONARY HYPERTENSION
     Route: 048
     Dates: start: 20050223
  3. LASIX [Concomitant]
  4. KLOR-CON [Concomitant]
  5. ALDACTONE [Concomitant]
  6. WARFARIN [Concomitant]
  7. PAXIL [Concomitant]
  8. OXCARBAZEPINE [Concomitant]
  9. TRAZODONE [Concomitant]
  10. TYLENOL [Concomitant]
  11. LOPERAMIDE [Concomitant]

REACTIONS (1)
  - BASEDOW'S DISEASE [None]
